FAERS Safety Report 5878719-5 (Version None)
Quarter: 2008Q3

REPORT INFORMATION
  Report Type: 
  Country: None (occurrence: None)
  Receive Date: 20080912
  Receipt Date: 20080903
  Transmission Date: 20090109
  Serious: Yes (Disabling)
  Sender: FDA-Public Use
  Company Number: US-JNJFOC-20080703711

PATIENT
  Sex: Male
  Weight: 86.18 kg

DRUGS (9)
  1. LEVAQUIN [Suspect]
     Indication: LUNG INFECTION PSEUDOMONAL
     Route: 048
  2. AVELOX [Suspect]
     Route: 065
  3. AVELOX [Suspect]
     Indication: DRUG USE FOR UNKNOWN INDICATION
     Route: 065
  4. CIPROFLOXACIN [Suspect]
     Indication: DRUG USE FOR UNKNOWN INDICATION
     Route: 065
  5. ADVAIR DISKUS 100/50 [Concomitant]
  6. PROTONICS [Concomitant]
     Indication: GASTROOESOPHAGEAL REFLUX DISEASE
  7. ALBUTEROL [Concomitant]
  8. METHYLPREDNISOLONE 16MG TAB [Concomitant]
     Indication: PNEUMONIA
  9. TOBRAMYCIN [Concomitant]
     Route: 055

REACTIONS (4)
  - ABASIA [None]
  - MUSCLE SPASMS [None]
  - PAIN IN EXTREMITY [None]
  - TENDON RUPTURE [None]
